FAERS Safety Report 6346962-7 (Version None)
Quarter: 2009Q3

REPORT INFORMATION
  Report Type: 
  Country: None (occurrence: None)
  Receive Date: 20090909
  Receipt Date: 20090909
  Transmission Date: 20100115
  Serious: No
  Sender: FDA-Public Use
  Company Number: None

PATIENT
  Age: 41 Year
  Sex: Female
  Weight: 92.9874 kg

DRUGS (4)
  1. SERTRLINEHCL 50 MG TABLET GRE GREENSTONE LTD [Suspect]
     Indication: DEPRESSION
     Dosage: 1 TABLET DAILY PO
     Route: 048
     Dates: start: 20090722, end: 20090810
  2. SERTRLINEHCL 50 MG TABLET GRE GREENSTONE LTD [Suspect]
     Indication: PREMENSTRUAL SYNDROME
     Dosage: 1 TABLET DAILY PO
     Route: 048
     Dates: start: 20090722, end: 20090810
  3. LESSINA [Concomitant]
  4. IMMUNOTHERAPY [Concomitant]

REACTIONS (3)
  - HYPERSENSITIVITY [None]
  - PRURITUS [None]
  - URTICARIA [None]
